FAERS Safety Report 10200821 (Version 2)
Quarter: 2014Q4

REPORT INFORMATION
  Report Type: Spontaneous
  Country: US (occurrence: US)
  Receive Date: 20140528
  Receipt Date: 20141020
  Transmission Date: 20150528
  Serious: Yes (Hospitalization, Other)
  Sender: FDA-Public Use
  Company Number: US-SA-2014SA068703

PATIENT
  Sex: Female
  Weight: 78.78 kg

DRUGS (11)
  1. CEREZYME [Suspect]
     Active Substance: IMIGLUCERASE
     Indication: LIPIDOSIS
     Dosage: PATIENT^S WEIGHT WAS 78.78 KG AND TOTAL DOSE WAS 4400 UNITS
     Route: 042
  2. NORMAL SALINE [Concomitant]
     Active Substance: SODIUM CHLORIDE
  3. SODIUM CHLORIDE. [Concomitant]
     Active Substance: SODIUM CHLORIDE
  4. WATER. [Concomitant]
     Active Substance: WATER
  5. FOSAMAX [Concomitant]
     Active Substance: ALENDRONATE SODIUM
  6. CEREZYME [Suspect]
     Active Substance: IMIGLUCERASE
     Indication: LIPIDOSIS
     Route: 042
  7. EPIPEN [Concomitant]
     Active Substance: EPINEPHRINE
  8. ASPIRIN. [Concomitant]
     Active Substance: ASPIRIN
  9. TYLENOL [Concomitant]
     Active Substance: ACETAMINOPHEN
  10. ZOLOFT [Concomitant]
     Active Substance: SERTRALINE HYDROCHLORIDE
  11. CALCIUM WITH VITAMIN D [Concomitant]
     Active Substance: CALCIUM\VITAMIN D

REACTIONS (2)
  - Joint arthroplasty [Unknown]
  - Bronchitis [Unknown]

NARRATIVE: CASE EVENT DATE: 20140408
